FAERS Safety Report 6380993-6 (Version None)
Quarter: 2009Q3

REPORT INFORMATION
  Report Type: 
  Country: None (occurrence: None)
  Receive Date: 20090924
  Receipt Date: 20090918
  Transmission Date: 20100115
  Serious: Yes (Life-Threatening, Hospitalization)
  Sender: FDA-Public Use
  Company Number: 2009US003510

PATIENT
  Age: 60 Year
  Sex: Male

DRUGS (4)
  1. AMBISOME [Suspect]
     Indication: PERITONEAL CANDIDIASIS
     Dosage: 200 MG, UID/QD, IV NOS
     Route: 042
     Dates: start: 20090717, end: 20090727
  2. PROGRAF [Concomitant]
  3. CELLCEPT [Concomitant]
  4. CORTICOSTEROIDS [Concomitant]

REACTIONS (4)
  - CHEST PAIN [None]
  - ELECTROCARDIOGRAM ST SEGMENT ELEVATION [None]
  - MALAISE [None]
  - TACHYCARDIA [None]
